FAERS Safety Report 10303397 (Version 1)
Quarter: 2014Q3

REPORT INFORMATION
  Report Type: Spontaneous
  Country: FR (occurrence: FR)
  Receive Date: 20140714
  Receipt Date: 20140714
  Transmission Date: 20150326
  Serious: Yes (Hospitalization, Other)
  Sender: FDA-Public Use
  Company Number: FR-PFIZER INC-2014188977

PATIENT
  Age: 58 Year
  Sex: Male

DRUGS (10)
  1. ICAZ LP [Suspect]
     Active Substance: ISRADIPINE
     Dosage: 2.5 MG, DAILY (IN THE EVENING)
     Route: 048
     Dates: end: 20140312
  2. VELMETIA [Suspect]
     Active Substance: METFORMIN\SITAGLIPTIN
     Dosage: 1000 MG/50 MG, 2X/DAY
     Route: 048
     Dates: start: 20110623, end: 20140102
  3. ACTISOUFRE [Concomitant]
     Dosage: 1 DF, 3X/DAY
  4. NISISCO [Suspect]
     Active Substance: HYDROCHLOROTHIAZIDE\VALSARTAN
     Dosage: 25 MG/160 MG, DAILY (IN THE MORNING)
     Route: 048
     Dates: end: 20140312
  5. CELIPROLOL [Suspect]
     Active Substance: CELIPROLOL
     Dosage: 200 MG, 1X/DAY
     Route: 048
     Dates: end: 20140312
  6. SERETIDE [Concomitant]
     Active Substance: FLUTICASONE FUROATE\SALMETEROL XINAFOATE
     Dosage: 500 UG/50 UG, 2X/DAY (IN THE MORNING AND EVENING)
  7. TAHOR [Suspect]
     Active Substance: ATORVASTATIN CALCIUM
     Dosage: 10 MG, DAILY (IN THE EVENING)
     Route: 048
     Dates: end: 20140312
  8. SPIRIVA [Concomitant]
     Active Substance: TIOTROPIUM BROMIDE MONOHYDRATE
     Dosage: 18 UG, DAILY (IN THE MORNING
  9. JANUVIA [Suspect]
     Active Substance: SITAGLIPTIN PHOSPHATE
     Dosage: 100 MG, DAILY (IN THE MORNING)
     Route: 048
     Dates: start: 20140102, end: 20140312
  10. DIAMICRON [Suspect]
     Active Substance: GLICLAZIDE
     Dosage: 60 MG, DAILY (IN THE MORNING)
     Route: 048
     Dates: end: 20140312

REACTIONS (10)
  - Renal failure acute [Recovered/Resolved]
  - Pancreatitis acute [Recovered/Resolved]
  - Jaundice [Unknown]
  - Hypotension [Unknown]
  - Weight decreased [Unknown]
  - Hyperglycaemia [Unknown]
  - Dehydration [Unknown]
  - Aortic aneurysm [Unknown]
  - Cholestasis [Unknown]
  - Pancreatic necrosis [Unknown]

NARRATIVE: CASE EVENT DATE: 20140312
